FAERS Safety Report 14534218 (Version 1)
Quarter: 2018Q1

REPORT INFORMATION
  Report Type: Spontaneous
  Country: US (occurrence: US)
  Receive Date: 20180214
  Receipt Date: 20180214
  Transmission Date: 20180509
  Serious: Yes (Hospitalization)
  Sender: FDA-Public Use
  Company Number: None

PATIENT
  Age: 53 Year
  Sex: Female

DRUGS (32)
  1. RELPAX [Concomitant]
     Active Substance: ELETRIPTAN HYDROBROMIDE
  2. SOMA [Concomitant]
     Active Substance: CARISOPRODOL
  3. PREDNISONE. [Concomitant]
     Active Substance: PREDNISONE
  4. ZANAFLEX [Concomitant]
     Active Substance: TIZANIDINE HYDROCHLORIDE
  5. LORTAB [Concomitant]
     Active Substance: ACETAMINOPHEN\HYDROCODONE BITARTRATE
  6. METAXALONE. [Concomitant]
     Active Substance: METAXALONE
  7. TRAMADOL HCL [Concomitant]
     Active Substance: TRAMADOL HYDROCHLORIDE
  8. LORAZEPAM. [Concomitant]
     Active Substance: LORAZEPAM
  9. GILENYA [Suspect]
     Active Substance: FINGOLIMOD HYDROCHLORIDE
     Indication: MULTIPLE SCLEROSIS
     Route: 048
     Dates: start: 20131204
  10. VICODIN [Concomitant]
     Active Substance: ACETAMINOPHEN\HYDROCODONE BITARTRATE
  11. ZONEGRAN [Concomitant]
     Active Substance: ZONISAMIDE
  12. LEXAPRO [Concomitant]
     Active Substance: ESCITALOPRAM OXALATE
  13. CEFUROXIME. [Concomitant]
     Active Substance: CEFUROXIME
  14. HYDROCO/APAP [Concomitant]
     Active Substance: ACETAMINOPHEN\HYDROCODONE
  15. NASONEX [Concomitant]
     Active Substance: MOMETASONE FUROATE
  16. TOPAMAX [Concomitant]
     Active Substance: TOPIRAMATE
  17. ESGIC-PLUS [Concomitant]
     Active Substance: ACETAMINOPHEN\BUTALBITAL\CAFFEINE
  18. COPAXONE [Concomitant]
     Active Substance: GLATIRAMER ACETATE
  19. APAP/CODEINE [Concomitant]
     Active Substance: ACETAMINOPHEN\CODEINE PHOSPHATE
  20. AMBIEN [Concomitant]
     Active Substance: ZOLPIDEM TARTRATE
  21. TIZANIDINE. [Concomitant]
     Active Substance: TIZANIDINE
  22. SYNTHROID [Concomitant]
     Active Substance: LEVOTHYROXINE SODIUM
  23. TOPIRAMATE. [Concomitant]
     Active Substance: TOPIRAMATE
  24. OMEGA 3 [Concomitant]
     Active Substance: OMEGA-3 FATTY ACIDS
  25. ULTRACET [Concomitant]
     Active Substance: ACETAMINOPHEN\TRAMADOL HYDROCHLORIDE
  26. SKELAXIN [Concomitant]
     Active Substance: METAXALONE
  27. TRAZODONE [Concomitant]
     Active Substance: TRAZODONE HYDROCHLORIDE
  28. ADVAIR DISKU [Concomitant]
  29. LEVOTHYROXIN [Concomitant]
     Active Substance: LEVOTHYROXINE
  30. SINGULAIR [Concomitant]
     Active Substance: MONTELUKAST SODIUM
  31. REQUIP [Concomitant]
     Active Substance: ROPINIROLE HYDROCHLORIDE
  32. BUSPIRONE [Concomitant]
     Active Substance: BUSPIRONE HYDROCHLORIDE

REACTIONS (5)
  - Skin burning sensation [None]
  - Condition aggravated [None]
  - Fall [None]
  - Drug dose omission [None]
  - Contusion [None]

NARRATIVE: CASE EVENT DATE: 201802
